FAERS Safety Report 17870486 (Version 3)
Quarter: 2020Q3

REPORT INFORMATION
  Report Type: Spontaneous
  Country: US (occurrence: US)
  Receive Date: 20200608
  Receipt Date: 20200701
  Transmission Date: 20201103
  Serious: Yes (Other)
  Sender: FDA-Public Use
  Company Number: US-PFIZER INC-2020220800

PATIENT
  Age: 57 Year
  Sex: Female

DRUGS (1)
  1. PREMARIN [Suspect]
     Active Substance: ESTROGENS, CONJUGATED
     Dosage: 1 G, 2X/WEEK (1 G PER VAGINA 2/WEEK)
     Route: 067

REACTIONS (4)
  - Discomfort [Unknown]
  - Ovarian cyst [Unknown]
  - Off label use [Unknown]
  - Ovarian cancer [Unknown]
